FAERS Safety Report 13439655 (Version 2)
Quarter: 2017Q2

REPORT INFORMATION
  Report Type: Report from Study
  Country: US (occurrence: US)
  Receive Date: 20170413
  Receipt Date: 20170606
  Transmission Date: 20170830
  Serious: Yes (Other)
  Sender: FDA-Public Use
  Company Number: US-TEVA-759717USA

PATIENT
  Age: 32 Year
  Sex: Male

DRUGS (4)
  1. DIVALPROEX ER [Concomitant]
     Active Substance: DIVALPROEX SODIUM
     Dosage: 2000 MILLIGRAM DAILY;
  2. CLOZAPINE. [Suspect]
     Active Substance: CLOZAPINE
     Route: 048
  3. VENLAFAXINE [Concomitant]
     Active Substance: VENLAFAXINE HYDROCHLORIDE
     Dosage: 150 MILLIGRAM DAILY;
  4. GABAPENTIN. [Concomitant]
     Active Substance: GABAPENTIN
     Dosage: 400 MILLIGRAM DAILY; AT BEDTIME

REACTIONS (1)
  - Granulocytopenia [Recovered/Resolved]

NARRATIVE: CASE EVENT DATE: 20170407
